FAERS Safety Report 5480894-1 (Version None)
Quarter: 2007Q4

REPORT INFORMATION
  Report Type: 
  Country: None (occurrence: None)
  Receive Date: 20071004
  Receipt Date: 20070919
  Transmission Date: 20080405
  Serious: Yes (Other)
  Sender: FDA-Public Use
  Company Number: DSJ_2007-06024

PATIENT
  Age: 81 Year
  Sex: Female
  Weight: 60 kg

DRUGS (3)
  1. OLMESARTAN MEDOXOMIL [Suspect]
     Indication: HYPERTENSION
     Dosage: 20 MG (10 MG, 2 IN 1 D), PER ORAL
     Route: 048
     Dates: start: 20070711, end: 20070810
  2. PRORENAL (LIMAPROST) (TABLET) (LIMAPROST) [Suspect]
     Indication: ARTERIOSCLEROSIS OBLITERANS
     Dosage: 15 MCG (5 MCG, 3 IN 1 D), PER ORAL
     Route: 048
     Dates: start: 20070711, end: 20070810
  3. LIPITOR [Suspect]
     Indication: HYPERCHOLESTEROLAEMIA
     Dosage: 10 MG (10 MG, 1 IN 1 D), PER ORAL
     Route: 048
     Dates: start: 20070711, end: 20070810

REACTIONS (2)
  - GENERALISED ERYTHEMA [None]
  - HEPATITIS [None]
